FAERS Safety Report 8507234-5 (Version None)
Quarter: 2012Q3

REPORT INFORMATION
  Report Type: 
  Country: None (occurrence: None)
  Receive Date: 20120712
  Receipt Date: 20120704
  Transmission Date: 20120928
  Serious: Yes (Hospitalization)
  Sender: FDA-Public Use
  Company Number: SK-ABBOTT-12P-260-0952809-00

PATIENT
  Sex: Male
  Weight: 107 kg

DRUGS (2)
  1. TARKA [Suspect]
     Indication: HYPERTENSION
     Dosage: 240MG/4MG
     Route: 048
     Dates: start: 20120424, end: 20120426
  2. METFORMIN HCL [Concomitant]
     Indication: PRODUCT USED FOR UNKNOWN INDICATION

REACTIONS (3)
  - RASH GENERALISED [None]
  - RASH MACULO-PAPULAR [None]
  - OEDEMA PERIPHERAL [None]
